FAERS Safety Report 9147220 (Version 1)
Quarter: 2013Q1

REPORT INFORMATION
  Report Type: Spontaneous
  Country: FR (occurrence: FR)
  Receive Date: 20130307
  Receipt Date: 20130307
  Transmission Date: 20140127
  Serious: Yes (Hospitalization)
  Sender: FDA-Public Use
  Company Number: FR-ROCHE-1198673

PATIENT
  Age: 78 Year
  Sex: Male

DRUGS (8)
  1. LUCENTIS [Suspect]
     Indication: PRODUCT USED FOR UNKNOWN INDICATION
     Route: 050
     Dates: start: 20110106
  2. PLAVIX [Concomitant]
  3. ASPEGIC [Concomitant]
  4. TAHOR [Concomitant]
  5. LORAZEPAM [Concomitant]
  6. PRAXILENE [Concomitant]
  7. DETENSIEL [Concomitant]
  8. RAMIPRIL [Concomitant]

REACTIONS (1)
  - Ischaemic stroke [Recovered/Resolved]
